FAERS Safety Report 4382351-2 (Version None)
Quarter: 2004Q2

REPORT INFORMATION
  Report Type: 
  Country: None (occurrence: None)
  Receive Date: 20040616
  Receipt Date: 20040611
  Transmission Date: 20050107
  Serious: Yes (Other)
  Sender: FDA-Public Use
  Company Number: GBWYE814509JUN04

PATIENT
  Age: 31 Year
  Sex: Female

DRUGS (1)
  1. EFFEXOR [Suspect]
     Indication: DEPRESSION
     Dosage: 300 MG 1X PER 1 DAY ORAL
     Route: 048
     Dates: start: 20000101, end: 20020420

REACTIONS (2)
  - ANGIOPATHY [None]
  - DRUG EXPOSURE DURING PREGNANCY [None]
